FAERS Safety Report 7279327-4 (Version None)
Quarter: 2011Q1

REPORT INFORMATION
  Report Type: 
  Country: None (occurrence: None)
  Receive Date: 20110207
  Receipt Date: 20110124
  Transmission Date: 20110831
  Serious: Yes (Hospitalization)
  Sender: FDA-Public Use
  Company Number: DK-MERCK-1102DNK00004

PATIENT
  Age: 41 Year
  Sex: Male

DRUGS (3)
  1. VILDAGLIPTIN [Suspect]
     Indication: TYPE 2 DIABETES MELLITUS
     Route: 048
     Dates: start: 20080101, end: 20101124
  2. ZOCOR [Suspect]
     Indication: DYSLIPIDAEMIA
     Route: 048
  3. METFORMIN [Suspect]
     Indication: DIABETES MELLITUS
     Route: 048
     Dates: start: 20080101

REACTIONS (5)
  - PYREXIA [None]
  - C-REACTIVE PROTEIN INCREASED [None]
  - BLOOD AMYLASE INCREASED [None]
  - ABDOMINAL PAIN UPPER [None]
  - PANCREATITIS ACUTE [None]
